FAERS Safety Report 13763873 (Version 2)
Quarter: 2017Q3

REPORT INFORMATION
  Report Type: Spontaneous
  Country: US (occurrence: US)
  Receive Date: 20170718
  Receipt Date: 20170726
  Transmission Date: 20171127
  Serious: Yes (Other)
  Sender: FDA-Public Use
  Company Number: US-AMGEN-USASP2017106434

PATIENT
  Age: 68 Year
  Sex: Female

DRUGS (4)
  1. PROLIA [Suspect]
     Active Substance: DENOSUMAB
     Indication: OSTEOPOROSIS POSTMENOPAUSAL
     Dosage: UNK
     Route: 065
     Dates: start: 20170517
  2. CALCIUM [Concomitant]
     Active Substance: CALCIUM
     Dosage: 600 MG, BID
  3. OXYCONTIN [Concomitant]
     Active Substance: OXYCODONE HYDROCHLORIDE
  4. VITAMIN D3 [Concomitant]
     Active Substance: CHOLECALCIFEROL
     Dosage: 5000 IU, UNK

REACTIONS (31)
  - Pneumonia chlamydial [Unknown]
  - Meniere^s disease [Not Recovered/Not Resolved]
  - Impaired gastric emptying [Unknown]
  - Skin exfoliation [Unknown]
  - Hyperhidrosis [Unknown]
  - Tooth fracture [Unknown]
  - Blood calcium increased [Unknown]
  - Pain [Unknown]
  - Dry mouth [Unknown]
  - Constipation [Unknown]
  - Thyroid cyst [Unknown]
  - Disturbance in attention [Unknown]
  - Visual impairment [Unknown]
  - Skin induration [Unknown]
  - Headache [Unknown]
  - Back pain [Unknown]
  - Sinusitis [Unknown]
  - Dyspepsia [Unknown]
  - Drooling [Unknown]
  - Pain in extremity [Unknown]
  - Decreased appetite [Unknown]
  - Pruritus generalised [Unknown]
  - Mood swings [Unknown]
  - Gastric disorder [Unknown]
  - Loss of personal independence in daily activities [Unknown]
  - Pharyngitis [Unknown]
  - Wound [Recovered/Resolved]
  - Confusional state [Unknown]
  - Arthralgia [Unknown]
  - Dizziness [Unknown]
  - Bone pain [Unknown]

NARRATIVE: CASE EVENT DATE: 2017
